APPROVED DRUG PRODUCT: SODIUM PHENYLACETATE AND SODIUM BENZOATE
Active Ingredient: SODIUM BENZOATE; SODIUM PHENYLACETATE
Strength: 10%;10% (5GM/50ML;5GM/50ML)
Dosage Form/Route: SOLUTION;INTRAVENOUS
Application: A205880 | Product #001 | TE Code: AP
Applicant: NAVINTA LLC
Approved: Aug 4, 2016 | RLD: No | RS: No | Type: RX